FAERS Safety Report 24038905 (Version 1)
Quarter: 2024Q3

REPORT INFORMATION
  Report Type: Spontaneous
  Country: US (occurrence: US)
  Receive Date: 20240702
  Receipt Date: 20240702
  Transmission Date: 20241016
  Serious: Yes (Other)
  Sender: APOTEX
  Company Number: US-APOTEX-2024AP007760

PATIENT
  Age: 45 Year
  Sex: Male

DRUGS (1)
  1. DASATINIB [Suspect]
     Active Substance: DASATINIB
     Indication: Chronic myeloid leukaemia
     Dosage: UNK
     Route: 065
     Dates: start: 201906

REACTIONS (2)
  - Pulmonary hypertension [Recovering/Resolving]
  - Pleural effusion [Recovered/Resolved]

NARRATIVE: CASE EVENT DATE: 20220301
